FAERS Safety Report 6156604-1 (Version None)
Quarter: 2009Q2

REPORT INFORMATION
  Report Type: 
  Country: None (occurrence: None)
  Receive Date: 20090416
  Receipt Date: 20090413
  Transmission Date: 20091009
  Serious: No
  Sender: FDA-Public Use
  Company Number: US-B.I. PHARMACEUTICALS,INC./RIDGEFIELD-2007-BP-01846BP

PATIENT
  Age: 80 Year
  Sex: Male

DRUGS (7)
  1. SPIRIVA [Suspect]
     Indication: BRONCHITIS
     Dosage: 18MCG
     Route: 055
     Dates: start: 20070201
  2. SPIRIVA [Suspect]
     Indication: EMPHYSEMA
     Dosage: 18MCG
     Route: 055
     Dates: start: 20070201
  3. SPIRIVA [Suspect]
     Indication: ASTHMA
  4. ALBUTEROL [Concomitant]
     Indication: DYSPNOEA
     Dosage: 3PUF
     Route: 048
  5. ALBUTEROL [Concomitant]
     Indication: EMPHYSEMA
  6. COMBIVENT [Concomitant]
     Indication: EMPHYSEMA
     Dates: end: 20090401
  7. THEOPHYLLINE [Concomitant]
     Indication: EMPHYSEMA
     Dosage: 400MG

REACTIONS (2)
  - DRUG INEFFECTIVE [None]
  - WHEEZING [None]
